FAERS Safety Report 8084117-9 (Version None)
Quarter: 2012Q1

REPORT INFORMATION
  Report Type: 
  Country: None (occurrence: None)
  Receive Date: 20120128
  Receipt Date: 20110204
  Transmission Date: 20120608
  Serious: No
  Sender: FDA-Public Use
  Company Number: US-ABBOTT-11P-163-0703561-00

PATIENT
  Age: 60 Year
  Sex: Male

DRUGS (10)
  1. METHOTREXATE [Concomitant]
     Indication: PRODUCT USED FOR UNKNOWN INDICATION
     Dosage: 7 TABS WEEKLY
  2. FOLIC ACID [Concomitant]
     Indication: RHEUMATOID ARTHRITIS
  3. NIACIN [Concomitant]
     Indication: HYPERTENSION
  4. HUMIRA [Suspect]
     Indication: RHEUMATOID ARTHRITIS
     Dates: start: 20100101
  5. PLAVIX [Concomitant]
     Indication: ARTERIAL STENOSIS
  6. LISINOPRIL [Concomitant]
     Indication: HYPERTENSION
     Dosage: 10/25 MG X 1 TABLET TWICE DAILY
  7. CRESTOR [Concomitant]
     Indication: BLOOD CHOLESTEROL INCREASED
  8. XANAX [Concomitant]
     Indication: ANXIETY
  9. IBUPROFEN [Concomitant]
     Indication: RHEUMATOID ARTHRITIS
  10. NIACIN [Concomitant]
     Indication: BLOOD CHOLESTEROL INCREASED

REACTIONS (3)
  - INJECTION SITE HAEMATOMA [None]
  - CYST [None]
  - INJECTION SITE PAIN [None]
